FAERS Safety Report 6697049-5 (Version None)
Quarter: 2010Q2

REPORT INFORMATION
  Report Type: 
  Country: None (occurrence: None)
  Receive Date: 20100426
  Receipt Date: 20100414
  Transmission Date: 20101027
  Serious: Yes (Other)
  Sender: FDA-Public Use
  Company Number: PHHY2010CO23427

PATIENT
  Sex: Male

DRUGS (5)
  1. ZOMETA [Suspect]
     Indication: METASTASES TO SPINE
     Dosage: UNK
     Route: 042
  2. LOSARTAN POTASSIUM [Concomitant]
     Indication: HYPERTENSION
  3. HYDROCHLOROTHIAZIDE [Concomitant]
     Indication: HYPERTENSION
  4. OMEPRAZOLE [Concomitant]
  5. ENOXAPARIN SODIUM [Concomitant]
     Indication: PULMONARY VEIN OCCLUSION

REACTIONS (5)
  - CANCER PAIN [None]
  - HAEMATOCRIT DECREASED [None]
  - OSTEONECROSIS [None]
  - PULMONARY EMBOLISM [None]
  - WHITE BLOOD CELL COUNT DECREASED [None]
